FAERS Safety Report 5964384-5 (Version None)
Quarter: 2008Q4

REPORT INFORMATION
  Report Type: 
  Country: None (occurrence: None)
  Receive Date: 20081124
  Receipt Date: 20081112
  Transmission Date: 20090506
  Serious: Yes (Hospitalization, Other)
  Sender: FDA-Public Use
  Company Number: US-PFIZER INC-2008093625

PATIENT
  Sex: Male
  Weight: 95.3 kg

DRUGS (6)
  1. SU-011,248 [Suspect]
     Indication: OESOPHAGEAL CANCER METASTATIC
     Route: 048
     Dates: start: 20080822
  2. LANTUS [Concomitant]
     Dates: start: 20070101
  3. HUMALOG [Concomitant]
     Dates: start: 20070101
  4. OXYCODONE HCL [Concomitant]
     Dates: start: 20030101
  5. PROMETHAZINE [Concomitant]
     Dates: start: 20070101
  6. ATENOLOL [Concomitant]

REACTIONS (3)
  - ABDOMINAL PAIN [None]
  - HYPERTENSION [None]
  - SMALL INTESTINAL OBSTRUCTION [None]
